FAERS Safety Report 10190771 (Version 1)
Quarter: 2014Q2

REPORT INFORMATION
  Report Type: Spontaneous
  Country: GB (occurrence: GB)
  Receive Date: 20140523
  Receipt Date: 20140523
  Transmission Date: 20141212
  Serious: Yes (Other)
  Sender: FDA-Public Use
  Company Number: GB-009507513-1405GBR008288

PATIENT
  Age: 3 Decade
  Sex: Female
  Weight: 57.15 kg

DRUGS (2)
  1. MIRTAZAPINE [Suspect]
     Indication: DEPRESSION
     Dosage: UNK
     Route: 048
  2. PRAMIPEXOLE [Concomitant]
     Dosage: UNK

REACTIONS (1)
  - Restless legs syndrome [Not Recovered/Not Resolved]
